FAERS Safety Report 6591089-2 (Version None)
Quarter: 2010Q1

REPORT INFORMATION
  Report Type: 
  Country: None (occurrence: None)
  Receive Date: 20100219
  Receipt Date: 20100212
  Transmission Date: 20100710
  Serious: Yes (Hospitalization, Other)
  Sender: FDA-Public Use
  Company Number: DE-JNJCH-2010004215

PATIENT
  Age: 28 Year
  Sex: Male

DRUGS (4)
  1. REACTINE [Suspect]
     Indication: HYPERSENSITIVITY
     Dosage: TEXT:UNSPECIFIED
     Route: 048
     Dates: start: 20090919, end: 20090922
  2. PARACETAMOL [Suspect]
     Indication: INFLUENZA
     Dosage: TEXT:UNSPECIFIED
     Route: 065
  3. IBUPROFEN [Suspect]
     Indication: INFLUENZA
     Dosage: TEXT:UNSPECIFIED
     Route: 065
  4. GRIPPOSTAD [Suspect]
     Indication: INFLUENZA
     Dosage: TEXT:UNSPECIFIED
     Route: 048
     Dates: start: 20090902, end: 20090905

REACTIONS (2)
  - GASTRITIS [None]
  - HEPATITIS ACUTE [None]
